FAERS Safety Report 10487492 (Version 2)
Quarter: 2014Q4

REPORT INFORMATION
  Report Type: Spontaneous
  Country: US (occurrence: US)
  Receive Date: 20141001
  Receipt Date: 20141001
  Transmission Date: 20150528
  Serious: Yes (Other)
  Sender: FDA-Public Use
  Company Number: US-BAYER-2013-027509

PATIENT
  Age: 65 Year
  Sex: Male

DRUGS (17)
  1. PACLITAXEL. [Suspect]
     Active Substance: PACLITAXEL
     Indication: PROSTATE CANCER
     Dosage: UNK
     Route: 065
     Dates: start: 20050101
  2. ESTRAMUSTINE [Suspect]
     Active Substance: ESTRAMUSTINE
     Indication: PROSTATE CANCER
     Dosage: SIX CYCLES
     Route: 065
  3. PEMETREXED [Concomitant]
     Active Substance: PEMETREXED
  4. NEXAVAR [Suspect]
     Active Substance: SORAFENIB
     Indication: PROSTATE CANCER
     Dosage: DAILY GIVEN FIVE TIMES PER WEEK
     Route: 048
     Dates: start: 20080501
  5. BEVACIZUMAB [Suspect]
     Active Substance: BEVACIZUMAB
     Indication: PROSTATE CANCER
     Dosage: 5 MG/KG UNKNOWN 1 PER WEEK
     Route: 065
     Dates: start: 20080501
  6. ESTRAMUSTINE [Suspect]
     Active Substance: ESTRAMUSTINE
     Indication: PROSTATE CANCER
     Dosage: UNK
     Route: 065
     Dates: end: 20041201
  7. NEXAVAR [Suspect]
     Active Substance: SORAFENIB
     Indication: PROSTATE CANCER
     Dosage: DAILY DOSE 200 MG
     Route: 048
     Dates: end: 20100601
  8. ZOLEDRONIC ACID [Concomitant]
     Active Substance: ZOLEDRONIC ACID
     Dosage: UNK
     Route: 042
     Dates: start: 20051101, end: 20080101
  9. AMOXICILLIN TRIHYDRATE W/CLAVULANTE POTASSIUM [Concomitant]
     Active Substance: AMOXICILLIN\CLAVULANATE POTASSIUM
     Dosage: UNK
     Route: 048
     Dates: start: 20090901
  10. PACLITAXEL. [Suspect]
     Active Substance: PACLITAXEL
     Indication: PROSTATE CANCER
     Dosage: DAILY DOSE 80 MG/M2
     Route: 065
     Dates: end: 20100601
  11. ZOLEDRONIC ACID [Concomitant]
     Active Substance: ZOLEDRONIC ACID
     Dosage: 4 MG INTRAVENOUS (NOT OTHERWISE SPECIFIED) 1 PER MONTH
     Route: 042
     Dates: end: 20041201
  12. ALIMTA [Concomitant]
     Active Substance: PEMETREXED DISODIUM
     Dosage: UNK
  13. KETOCONAZOLE. [Concomitant]
     Active Substance: KETOCONAZOLE
     Dosage: UNK
  14. DOCETAXEL. [Suspect]
     Active Substance: DOCETAXEL
     Indication: PROSTATE CANCER
     Dosage: SIX CYCLES
     Route: 065
     Dates: end: 20041201
  15. DOCETAXEL. [Suspect]
     Active Substance: DOCETAXEL
     Indication: PROSTATE CANCER
     Dosage: UNK
     Route: 065
  16. PACLITAXEL. [Suspect]
     Active Substance: PACLITAXEL
     Indication: PROSTATE CANCER
     Dosage: DAILY DOSE 80 MG/M2
     Route: 065
     Dates: start: 20080501
  17. BEVACIZUMAB [Suspect]
     Active Substance: BEVACIZUMAB
     Indication: PROSTATE CANCER
     Dosage: 5 MG/KG UNKNOWN 1 PER WEEK
     Route: 065
     Dates: end: 20100601

REACTIONS (5)
  - Jaw fracture [Unknown]
  - Pain in jaw [Unknown]
  - Condition aggravated [Unknown]
  - Swelling face [Unknown]
  - Osteonecrosis of jaw [Unknown]

NARRATIVE: CASE EVENT DATE: 20100702
